FAERS Safety Report 11383741 (Version 3)
Quarter: 2015Q4

REPORT INFORMATION
  Report Type: Spontaneous
  Country: US (occurrence: US)
  Receive Date: 20150814
  Receipt Date: 20151016
  Transmission Date: 20160304
  Serious: Yes (Other)
  Sender: FDA-Public Use
  Company Number: US-ASTRAZENECA-2015SE78341

PATIENT
  Age: 56 Year
  Sex: Female
  Weight: 63 kg

DRUGS (22)
  1. CYTOXAN [Suspect]
     Active Substance: CYCLOPHOSPHAMIDE
     Route: 065
  2. MECLIZINE [Concomitant]
     Active Substance: MECLIZINE\MECLIZINE HYDROCHLORIDE
     Dosage: 25 , UNKNOWN, DAILY
  3. ABRAXANE [Suspect]
     Active Substance: PACLITAXEL
     Route: 065
  4. ZOLOFT [Suspect]
     Active Substance: SERTRALINE HYDROCHLORIDE
     Route: 065
  5. DIFLUCAN [Suspect]
     Active Substance: FLUCONAZOLE
     Route: 065
  6. CALCIUM [Concomitant]
     Active Substance: CALCIUM
  7. LORAZEPAM. [Concomitant]
     Active Substance: LORAZEPAM
     Dosage: AT NIGHT
  8. HUMALOG [Concomitant]
     Active Substance: INSULIN LISPRO
  9. PROMETHAZINE HYDROCHLORIDE. [Concomitant]
     Active Substance: PROMETHAZINE HYDROCHLORIDE
     Dosage: 25, UNKNOWN, AS REQUIRED
  10. VITAMIN D [Concomitant]
     Active Substance: CHOLECALCIFEROL
     Dosage: 400, TID
  11. MORPHINE [Concomitant]
     Active Substance: MORPHINE
  12. NEXIUM [Concomitant]
     Active Substance: ESOMEPRAZOLE MAGNESIUM
  13. FASLODEX [Suspect]
     Active Substance: FULVESTRANT
     Route: 030
  14. LORTAB [Concomitant]
     Active Substance: ACETAMINOPHEN\HYDROCODONE BITARTRATE
     Dosage: AS REQUIRED
  15. GLUCOPHAGE [Concomitant]
     Active Substance: METFORMIN HYDROCHLORIDE
  16. ASA [Concomitant]
     Active Substance: ASPIRIN
  17. DOXORUBICIN HYDROCHLORIDE. [Suspect]
     Active Substance: DOXORUBICIN HYDROCHLORIDE
     Indication: BREAST CANCER METASTATIC
     Dosage: 100 ML,UNKNOWN
     Route: 065
     Dates: start: 20110126, end: 20110210
  18. TAXOTERE [Suspect]
     Active Substance: DOCETAXEL
     Indication: BREAST CANCER METASTATIC
     Route: 065
     Dates: start: 20110126, end: 20110210
  19. FLEXERIL [Concomitant]
     Active Substance: CYCLOBENZAPRINE HYDROCHLORIDE
  20. IBRANCE [Suspect]
     Active Substance: PALBOCICLIB
     Dosage: 125 MG, DAILY , 3 WEEKS ON 1 WEEK OFF
     Route: 048
  21. LYRICA [Suspect]
     Active Substance: PREGABALIN
     Route: 065
  22. LEVOTHYROXINE. [Concomitant]
     Active Substance: LEVOTHYROXINE
     Dosage: 20, UNKNOWN

REACTIONS (3)
  - Chest pain [Recovered/Resolved]
  - Breast cancer metastatic [Unknown]
  - Back pain [Recovered/Resolved]
